FAERS Safety Report 20091354 (Version 1)
Quarter: 2021Q4

REPORT INFORMATION
  Report Type: Spontaneous
  Country: US (occurrence: None)
  Receive Date: 20211119
  Receipt Date: 20211119
  Transmission Date: 20220303
  Serious: Yes (Hospitalization)
  Sender: FDA-Public Use
  Company Number: None

PATIENT
  Age: 87 Year
  Sex: Male
  Weight: 71 kg

DRUGS (1)
  1. FUROSEMIDE [Suspect]
     Active Substance: FUROSEMIDE
     Indication: Cardiac failure congestive
     Dosage: FREQUENCY : DAILY;?
     Route: 048
     Dates: start: 20160622, end: 20210908

REACTIONS (5)
  - Acute kidney injury [None]
  - Hypotension [None]
  - Hypovolaemia [None]
  - Muscular weakness [None]
  - Muscular weakness [None]

NARRATIVE: CASE EVENT DATE: 20210904
